FAERS Safety Report 8814631 (Version 1)
Quarter: 2012Q4

REPORT INFORMATION
  Report Type: Spontaneous
  Country: US (occurrence: None)
  Receive Date: 20120926
  Receipt Date: 20120926
  Transmission Date: 20130627
  Serious: Yes (Other)
  Sender: FDA-Public Use
  Company Number: FK201202791

PATIENT
  Age: 19 Year
  Sex: Female

DRUGS (3)
  1. CISPLATIN [Suspect]
     Indication: MEDULLOBLASTOMA
  2. CYCLOPHOSPHAMIDE [Suspect]
  3. VINCRISTINE [Suspect]

REACTIONS (4)
  - Chronic myeloid leukaemia [None]
  - Blast crisis in myelogenous leukaemia [None]
  - Multi-organ failure [None]
  - Sepsis [None]
